FAERS Safety Report 12748107 (Version 1)
Quarter: 2016Q3

REPORT INFORMATION
  Report Type: Spontaneous
  Country: US (occurrence: US)
  Receive Date: 20160915
  Receipt Date: 20160915
  Transmission Date: 20161109
  Serious: No
  Sender: FDA-Public Use
  Company Number: US-ASTELLAS-2016US005917

PATIENT
  Sex: Male

DRUGS (3)
  1. XTANDI [Suspect]
     Active Substance: ENZALUTAMIDE
     Route: 048
  2. XTANDI [Suspect]
     Active Substance: ENZALUTAMIDE
     Indication: HORMONE-REFRACTORY PROSTATE CANCER
     Route: 048
     Dates: start: 20160205
  3. ZOLOFT [Suspect]
     Active Substance: SERTRALINE HYDROCHLORIDE
     Indication: ASTHENIA
     Dosage: UNK UNK, UNKNOWN FREQ.
     Route: 065

REACTIONS (13)
  - Diarrhoea [Unknown]
  - Arthralgia [Not Recovered/Not Resolved]
  - Feeling abnormal [Recovered/Resolved]
  - Drug dose omission [Unknown]
  - Hepatitis [Not Recovered/Not Resolved]
  - Loss of libido [Not Recovered/Not Resolved]
  - Diarrhoea [Recovering/Resolving]
  - Somnolence [Recovered/Resolved]
  - Intentional product use issue [Unknown]
  - Fatigue [Recovering/Resolving]
  - Feeling abnormal [Not Recovered/Not Resolved]
  - Arthritis [Not Recovered/Not Resolved]
  - Prostatic specific antigen increased [Not Recovered/Not Resolved]
